FAERS Safety Report 4733070-1 (Version None)
Quarter: 2005Q3

REPORT INFORMATION
  Report Type: 
  Country: None (occurrence: None)
  Receive Date: 20050729
  Receipt Date: 20050718
  Transmission Date: 20060218
  Serious: Yes (Other)
  Sender: FDA-Public Use
  Company Number: HQWYE257119JUL05

PATIENT
  Age: 50 Year
  Sex: Female

DRUGS (16)
  1. RAPAMUNE [Suspect]
     Indication: PROPHYLAXIS AGAINST TRANSPLANT REJECTION
     Dosage: SEE IMAGE
     Route: 048
     Dates: start: 20050601, end: 20050601
  2. RAPAMUNE [Suspect]
     Indication: PROPHYLAXIS AGAINST TRANSPLANT REJECTION
     Dosage: SEE IMAGE
     Route: 048
     Dates: start: 20050602, end: 20050610
  3. RAPAMUNE [Suspect]
     Indication: PROPHYLAXIS AGAINST TRANSPLANT REJECTION
     Dosage: SEE IMAGE
     Route: 048
     Dates: start: 20050611, end: 20050706
  4. RAPAMUNE [Suspect]
     Indication: PROPHYLAXIS AGAINST TRANSPLANT REJECTION
     Dosage: SEE IMAGE
     Route: 048
     Dates: start: 20050707
  5. CYCLOSPORINE [Suspect]
     Dosage: SEE IMAGE
     Route: 048
     Dates: start: 20050601, end: 20050609
  6. CYCLOSPORINE [Suspect]
     Dosage: SEE IMAGE
     Route: 048
     Dates: start: 20050610, end: 20050613
  7. CYCLOSPORINE [Suspect]
     Dosage: SEE IMAGE
     Route: 048
     Dates: start: 20050614, end: 20050616
  8. CYCLOSPORINE [Suspect]
     Dosage: SEE IMAGE
     Route: 048
     Dates: start: 20050617
  9. SIMVASTATIN [Concomitant]
  10. INSULIN [Concomitant]
  11. NPH INSULIN (INSULIN ISOPHANE) [Concomitant]
  12. AMLODIPINE [Concomitant]
  13. OMEPRAZOLE [Concomitant]
  14. BACTRIM [Concomitant]
  15. LOSARTAN POTASSIUM [Concomitant]
  16. PREDNISONE [Concomitant]

REACTIONS (1)
  - PROTEINURIA [None]
